FAERS Safety Report 9751554 (Version 1)
Quarter: 2013Q4

REPORT INFORMATION
  Report Type: Spontaneous
  Country: US (occurrence: US)
  Receive Date: 20131212
  Receipt Date: 20131212
  Transmission Date: 20140711
  Serious: Yes (Other)
  Sender: FDA-Public Use
  Company Number: US-NAPPMUNDI-USA-2013-0102600

PATIENT
  Sex: Male

DRUGS (2)
  1. DILAUDID TABLET [Suspect]
     Indication: PAIN
     Route: 048
  2. BUTRANS [Suspect]
     Indication: PAIN
     Route: 062

REACTIONS (1)
  - Drug abuse [Unknown]
